FAERS Safety Report 10012958 (Version 1)
Quarter: 2014Q1

REPORT INFORMATION
  Report Type: Spontaneous
  Country: US (occurrence: US)
  Receive Date: 20140314
  Receipt Date: 20140314
  Transmission Date: 20141002
  Serious: Yes (Other)
  Sender: FDA-Public Use
  Company Number: US-CELGENEUS-163-20785-14030373

PATIENT
  Age: 25 Year
  Sex: Female

DRUGS (7)
  1. THALOMID [Suspect]
     Indication: DERMATOMYOSITIS
     Route: 048
  2. METHOTREXATE [Suspect]
     Indication: HODGKIN^S DISEASE
     Route: 065
  3. STEROIDS [Suspect]
     Indication: HODGKIN^S DISEASE
     Route: 065
  4. ADRIAMYCIN [Concomitant]
     Indication: PRODUCT USED FOR UNKNOWN INDICATION
     Route: 065
  5. BLEOMYCIN [Concomitant]
     Indication: PRODUCT USED FOR UNKNOWN INDICATION
     Route: 065
  6. VINBLASTINE [Concomitant]
     Indication: PRODUCT USED FOR UNKNOWN INDICATION
     Route: 065
  7. DACARBAZINE [Concomitant]
     Indication: PRODUCT USED FOR UNKNOWN INDICATION
     Route: 065

REACTIONS (1)
  - Hodgkin^s disease nodular sclerosis [Unknown]
